FAERS Safety Report 11074955 (Version 1)
Quarter: 2015Q2

REPORT INFORMATION
  Report Type: Spontaneous
  Country: US (occurrence: None)
  Receive Date: 20150428
  Receipt Date: 20150428
  Transmission Date: 20150821
  Serious: Yes (Hospitalization)
  Sender: FDA-Public Use
  Company Number: None

PATIENT
  Age: 53 Year
  Sex: Female
  Weight: 60.33 kg

DRUGS (6)
  1. ZANTAC [Concomitant]
     Active Substance: RANITIDINE HYDROCHLORIDE
  2. ZOCOR [Concomitant]
     Active Substance: SIMVASTATIN
  3. CARBOPLATIN. [Suspect]
     Active Substance: CARBOPLATIN
     Dates: end: 20120207
  4. COZAAR [Concomitant]
     Active Substance: LOSARTAN POTASSIUM
  5. TAXOL [Suspect]
     Active Substance: PACLITAXEL
     Dates: end: 20120207
  6. MOTRIN [Concomitant]
     Active Substance: IBUPROFEN

REACTIONS (1)
  - Female genital tract fistula [None]

NARRATIVE: CASE EVENT DATE: 20120211
